FAERS Safety Report 22146556 (Version 3)
Quarter: 2025Q1

REPORT INFORMATION
  Report Type: Spontaneous
  Country: US (occurrence: US)
  Receive Date: 20230328
  Receipt Date: 20250109
  Transmission Date: 20250409
  Serious: No
  Sender: AMGEN
  Company Number: US-AMGEN-USASP2023053312

PATIENT
  Sex: Female

DRUGS (10)
  1. OTEZLA [Suspect]
     Active Substance: APREMILAST
     Indication: Psoriasis
     Dosage: 30 MILLIGRAM, BID
     Route: 048
     Dates: start: 20220621
  2. ATORVASTATIN [Concomitant]
     Active Substance: ATORVASTATIN
  3. BETAMETHASONE DIPROPIONATE [Concomitant]
     Active Substance: BETAMETHASONE DIPROPIONATE
  4. CALCIPOTRIENE [Concomitant]
     Active Substance: CALCIPOTRIENE
  5. IBUPROFEN [Concomitant]
     Active Substance: IBUPROFEN
  6. LEVOTHYROXINE [Concomitant]
     Active Substance: LEVOTHYROXINE
  7. RIZATRIPTAN [Concomitant]
     Active Substance: RIZATRIPTAN
  8. STELARA [Concomitant]
     Active Substance: USTEKINUMAB
  9. Triamcinolon [Concomitant]
  10. PAXLOVID [Concomitant]
     Active Substance: NIRMATRELVIR\RITONAVIR

REACTIONS (4)
  - Psoriasis [Recovering/Resolving]
  - Headache [Not Recovered/Not Resolved]
  - Diarrhoea [Recovering/Resolving]
  - Memory impairment [Unknown]
